FAERS Safety Report 8913481 (Version 3)
Quarter: 2013Q2

REPORT INFORMATION
  Report Type: Spontaneous
  Country: US (occurrence: US)
  Receive Date: 20121116
  Receipt Date: 20130503
  Transmission Date: 20140414
  Serious: No
  Sender: FDA-Public Use
  Company Number: US-BIOGENIDEC-2012BI051479

PATIENT
  Age: 58 Year
  Sex: Female

DRUGS (2)
  1. TYSABRI [Suspect]
     Indication: MULTIPLE SCLEROSIS
     Route: 042
     Dates: start: 20120209
  2. BACLOFEN [Concomitant]
     Indication: PRODUCT USED FOR UNKNOWN INDICATION

REACTIONS (30)
  - Respiratory tract congestion [Unknown]
  - Fungal infection [Recovered/Resolved]
  - Vertigo [Not Recovered/Not Resolved]
  - Dissociation [Not Recovered/Not Resolved]
  - Thirst [Not Recovered/Not Resolved]
  - Muscle spasticity [Recovered/Resolved]
  - Speech disorder [Recovered/Resolved]
  - Dry mouth [Not Recovered/Not Resolved]
  - Weight increased [Not Recovered/Not Resolved]
  - Memory impairment [Recovered/Resolved]
  - Insomnia [Recovered/Resolved]
  - Discomfort [Recovered/Resolved]
  - Dysmenorrhoea [Recovered/Resolved]
  - Menstruation irregular [Recovered/Resolved]
  - Increased upper airway secretion [Recovered/Resolved]
  - Cough [Unknown]
  - Abasia [Unknown]
  - Aphagia [Unknown]
  - Mental impairment [Unknown]
  - Diarrhoea [Unknown]
  - Postmenopause [Not Recovered/Not Resolved]
  - Amenorrhoea [Unknown]
  - Urinary tract infection [Recovered/Resolved]
  - Fatigue [Not Recovered/Not Resolved]
  - Malaise [Recovered/Resolved]
  - Vaginal infection [Recovered/Resolved]
  - Rhinitis [Recovered/Resolved]
  - Pharyngitis [Recovered/Resolved]
  - Nausea [Unknown]
  - Asthenia [Unknown]
